FAERS Safety Report 10146986 (Version 1)
Quarter: 2014Q2

REPORT INFORMATION
  Report Type: Spontaneous
  Country: US (occurrence: US)
  Receive Date: 20140501
  Receipt Date: 20140501
  Transmission Date: 20141212
  Serious: Yes (Other)
  Sender: FDA-Public Use
  Company Number: US-GLAXOSMITHKLINE-A1071573A

PATIENT
  Age: 22 Year
  Sex: Female

DRUGS (5)
  1. WELLBUTRIN [Suspect]
     Indication: MOOD SWINGS
     Route: 065
     Dates: start: 2012
  2. LUPRON DEPOT [Suspect]
     Indication: ENDOMETRIOSIS
     Dosage: 3.75MG MONTHLY
     Route: 065
     Dates: start: 201210, end: 201305
  3. NORETHINDRONE ACETATE [Suspect]
     Indication: PRODUCT USED FOR UNKNOWN INDICATION
     Dosage: 5MG PER DAY
     Route: 065
     Dates: start: 201210
  4. URELLE [Concomitant]
  5. VICODIN [Concomitant]

REACTIONS (7)
  - Anaphylactic shock [Recovered/Resolved]
  - Drug hypersensitivity [Recovered/Resolved]
  - Hypokinesia [Recovered/Resolved]
  - Vision blurred [Recovered/Resolved]
  - Hyperventilation [Recovered/Resolved]
  - Agraphia [Recovered/Resolved]
  - Hypoaesthesia [Recovered/Resolved]
